FAERS Safety Report 6671048-1 (Version None)
Quarter: 2010Q2

REPORT INFORMATION
  Report Type: 
  Country: None (occurrence: None)
  Receive Date: 20100407
  Receipt Date: 20100405
  Transmission Date: 20101027
  Serious: Yes (Disabling)
  Sender: FDA-Public Use
  Company Number: US-SANOFI-AVENTIS-A03200902307

PATIENT
  Age: 38 Year
  Sex: Female
  Weight: 69.9 kg

DRUGS (8)
  1. CLOPIDOGREL BISULFATE [Suspect]
     Indication: THROMBOSIS PROPHYLAXIS
     Dosage: UNIT DOSE: 75 MG
     Route: 048
     Dates: start: 20050601, end: 20080906
  2. ASPIRIN [Suspect]
     Dosage: UNIT DOSE: 325 MG
     Route: 048
     Dates: start: 20050601, end: 20080901
  3. HYDROCODONE BITARTRATE + ACETAMINOPHEN [Concomitant]
     Route: 065
  4. ANTIDEPRESSANTS [Concomitant]
     Route: 065
  5. EFFEXOR [Concomitant]
     Indication: DEPRESSION
     Dosage: UNIT DOSE: 75 MG
     Route: 065
     Dates: start: 20080325
  6. EFFEXOR [Concomitant]
     Indication: ANXIETY
     Dosage: UNIT DOSE: 75 MG
     Route: 065
     Dates: start: 20080325
  7. LYRICA [Concomitant]
     Indication: PAIN
     Dosage: DOSE TEXT: 1 TO 2 A DAY UNIT DOSE: 50 MG
     Route: 065
     Dates: start: 20080325
  8. PROPOXYPHENE HCL [Concomitant]
     Indication: PAIN
     Route: 065
     Dates: start: 20080325

REACTIONS (12)
  - CONTUSION [None]
  - COUGH [None]
  - DIZZINESS [None]
  - DRY MOUTH [None]
  - DYSPHONIA [None]
  - DYSPNOEA [None]
  - EPISTAXIS [None]
  - HEADACHE [None]
  - MENORRHAGIA [None]
  - MUSCULAR WEAKNESS [None]
  - OFF LABEL USE [None]
  - VARICOSE VEIN [None]
